FAERS Safety Report 21556013 (Version 1)
Quarter: 2022Q4

REPORT INFORMATION
  Report Type: Spontaneous
  Country: DE (occurrence: DE)
  Receive Date: 20221104
  Receipt Date: 20221104
  Transmission Date: 20230112
  Serious: Yes (Hospitalization)
  Sender: FDA-Public Use
  Company Number: None

PATIENT
  Age: 29 Year
  Sex: Female
  Weight: 60 kg

DRUGS (2)
  1. AJOVY [Suspect]
     Active Substance: FREMANEZUMAB-VFRM
     Indication: Migraine
     Dosage: NORMALLY 225 MG ONCE A MONTH, BUT FOR MAY/JUNE/JULY: 1X 675 MG ON JUNE 14TH. , FORM STRENGTH : 225 M
     Dates: start: 20220318
  2. COMIRNATY [Suspect]
     Active Substance: TOZINAMERAN
     Indication: COVID-19 immunisation
     Dosage: 3RD DOSE (2ND BOOSTER) , FORM STRENGTH : 0.3 ML , THERAPY END DATE : NASK
     Dates: start: 20220523

REACTIONS (2)
  - Sudden hearing loss [Recovered/Resolved with Sequelae]
  - Tinnitus [Recovered/Resolved with Sequelae]

NARRATIVE: CASE EVENT DATE: 20220724
